FAERS Safety Report 4345721-4 (Version None)
Quarter: 2004Q2

REPORT INFORMATION
  Report Type: 
  Country: None (occurrence: None)
  Receive Date: 20040421
  Receipt Date: 20040409
  Transmission Date: 20050107
  Serious: Yes (Congenital Anomaly)
  Sender: FDA-Public Use
  Company Number: 99P-056-0081807-00

PATIENT
  Age: 1 Day
  Sex: Female

DRUGS (1)
  1. DEPAKENE [Suspect]

REACTIONS (32)
  - ASPLENIA [None]
  - BRAIN MALFORMATION [None]
  - CAMPTODACTYLY CONGENITAL [None]
  - CONGENITAL ANOMALY [None]
  - CONGENITAL ATRIAL SEPTAL DEFECT [None]
  - CONGENITAL CYST [None]
  - CONGENITAL EYELID MALFORMATION [None]
  - CONGENITAL GENITAL MALFORMATION [None]
  - CONGENITAL JAW MALFORMATION [None]
  - CONGENITAL NOSE MALFORMATION [None]
  - CONGENITAL ORAL MALFORMATION [None]
  - CONGENITAL VENTRICULAR SEPTAL DEFECT [None]
  - DEVELOPMENTAL DELAY [None]
  - EAR MALFORMATION [None]
  - FACIAL DYSMORPHISM [None]
  - FINGER DEFORMITY [None]
  - FLAT FEET [None]
  - FOETAL GROWTH RETARDATION [None]
  - HYDROCEPHALUS [None]
  - HYPOTONIA NEONATAL [None]
  - LIVER DISORDER [None]
  - MATERNAL DRUGS AFFECTING FOETUS [None]
  - MICROPHTHALMOS [None]
  - MICROSTOMIA [None]
  - NASOPHARYNGEAL DISORDER [None]
  - NECK DEFORMITY [None]
  - NEONATAL DISORDER [None]
  - PECTUS EXCAVATUM [None]
  - PHALANGEAL HYPOPLASIA [None]
  - STRABISMUS [None]
  - TOE DEFORMITY [None]
  - TOOTH DISORDER [None]
